FAERS Safety Report 6578815-3 (Version None)
Quarter: 2010Q1

REPORT INFORMATION
  Report Type: 
  Country: None (occurrence: None)
  Receive Date: 20100202
  Receipt Date: 20100118
  Transmission Date: 20100710
  Serious: Yes (Hospitalization)
  Sender: FDA-Public Use
  Company Number: DSJ-2010-00837

PATIENT
  Age: 74 Year
  Sex: Female

DRUGS (7)
  1. AMLODIPINE BESYLATE AND OLMESARTAN MEDOXOMIL [Suspect]
     Indication: HYPERTENSION
     Dosage: 80/10 MG 92 IN 1 D), PER ORAL
     Route: 048
     Dates: start: 20090101
  2. ACETYLSALICYLIC ACID [Concomitant]
  3. BETAHISTINE [Suspect]
  4. INDAPAMIDE [Concomitant]
  5. SIMVASTATIN [Concomitant]
  6. FUROSEMIDE [Concomitant]
  7. SPIRONOLACTONE [Concomitant]

REACTIONS (5)
  - DEHYDRATION [None]
  - DRUG DOSE OMISSION [None]
  - DRUG INEFFECTIVE [None]
  - GASTRITIS [None]
  - LABYRINTHITIS [None]
